FAERS Safety Report 16806493 (Version 1)
Quarter: 2019Q3

REPORT INFORMATION
  Report Type: Spontaneous
  Country: GB (occurrence: GB)
  Receive Date: 20190913
  Receipt Date: 20190913
  Transmission Date: 20191005
  Serious: Yes (Death, Hospitalization)
  Sender: FDA-Public Use
  Company Number: GB-MYLANLABS-2019M1086213

PATIENT
  Age: 72 Year
  Sex: Female

DRUGS (2)
  1. THYROXINE [Concomitant]
     Active Substance: LEVOTHYROXINE
     Indication: THYROIDECTOMY
     Dosage: 175 MICROGRAM
     Route: 048
     Dates: start: 1994
  2. ATORVASTATIN [Suspect]
     Active Substance: ATORVASTATIN
     Indication: HYPERCHOLESTEROLAEMIA
     Dosage: 20 MILLIGRAM
     Route: 048
     Dates: start: 201802, end: 20180531

REACTIONS (3)
  - Dysphagia [Not Recovered/Not Resolved]
  - Immune-mediated necrotising myopathy [Fatal]
  - Asthenia [Not Recovered/Not Resolved]

NARRATIVE: CASE EVENT DATE: 201802
